FAERS Safety Report 9957581 (Version 1)
Quarter: 2014Q1

REPORT INFORMATION
  Report Type: Report from Study
  Country: PR (occurrence: PR)
  Receive Date: 20140304
  Receipt Date: 20140304
  Transmission Date: 20141002
  Serious: No
  Sender: FDA-Public Use
  Company Number: PR-ABBVIE-13P-131-1097886-00

PATIENT
  Age: 36 Year
  Sex: Female
  Weight: 73.55 kg

DRUGS (5)
  1. HUMIRA [Suspect]
     Indication: PSORIATIC ARTHROPATHY
     Route: 058
     Dates: start: 2011, end: 201212
  2. HUMIRA [Suspect]
     Indication: PSORIASIS
     Route: 058
     Dates: start: 201212, end: 201302
  3. HUMIRA [Suspect]
     Route: 058
     Dates: start: 201206
  4. VERAPAMIL (MIVAL) [Concomitant]
     Indication: HYPERTENSION
     Route: 048
     Dates: start: 2010
  5. CREAMS [Concomitant]
     Indication: PSORIASIS
     Dosage: AT BEDTIME AS NEEDED
     Route: 061

REACTIONS (1)
  - Nasopharyngitis [Not Recovered/Not Resolved]
